FAERS Safety Report 8478082 (Version 9)
Quarter: 2019Q3

REPORT INFORMATION
  Report Type: Spontaneous
  Country: BR (occurrence: BR)
  Receive Date: 20120327
  Receipt Date: 20190704
  Transmission Date: 20191005
  Serious: Yes (Other)
  Sender: FDA-Public Use
  Company Number: BR-AMGEN-BRASP2012017841

PATIENT
  Age: 60 Year
  Sex: Female
  Weight: 78 kg

DRUGS (17)
  1. PURAN [Concomitant]
     Active Substance: LEVOTHYROXINE SODIUM
     Indication: HYPOTHYROIDISM
     Dosage: 100 UG, 1X/DAY
     Dates: start: 1993
  2. ALPRAZOLAM. [Concomitant]
     Active Substance: ALPRAZOLAM
     Indication: RELAXATION THERAPY
     Dosage: 5 MG, 1X/DAY
  3. ENBREL [Suspect]
     Active Substance: ETANERCEPT
     Dosage: UNK UNK, Q2WK
     Route: 065
  4. PREDNISONE. [Suspect]
     Active Substance: PREDNISONE
     Dosage: 40 MG, UNK
     Route: 065
  5. ENBREL [Suspect]
     Active Substance: ETANERCEPT
     Dosage: 50 MILLIGRAM, QWK
     Route: 058
     Dates: start: 201212
  6. METHOTREXATE. [Concomitant]
     Active Substance: METHOTREXATE
     Indication: RHEUMATOID ARTHRITIS
     Dosage: 5 MILLIGRAM, QWK
  7. AMLODIPINE [Concomitant]
     Active Substance: AMLODIPINE BESYLATE
     Indication: HYPERTENSION
     Dosage: 5 MILLIGRAM, QD
  8. SERETIDE [Concomitant]
     Active Substance: FLUTICASONE PROPIONATE\SALMETEROL XINAFOATE
     Indication: ASTHMA
     Dosage: UNK
     Dates: start: 201204
  9. ALEGRA [Concomitant]
     Dosage: UNK
  10. ENBREL [Suspect]
     Active Substance: ETANERCEPT
     Indication: RHEUMATOID ARTHRITIS
     Dosage: 50 MILLIGRAM, QWK
     Route: 058
     Dates: start: 200909, end: 20120718
  11. REMICADE [Suspect]
     Active Substance: INFLIXIMAB
     Indication: PRODUCT USED FOR UNKNOWN INDICATION
     Dosage: UNK
     Route: 065
  12. ENBREL [Suspect]
     Active Substance: ETANERCEPT
     Dosage: UNK,PHYSICIAN PRESCRIBED ENBREL EVERY 15 DAYS
     Route: 065
  13. PREDNISONE. [Suspect]
     Active Substance: PREDNISONE
     Indication: RHEUMATOID ARTHRITIS
     Dosage: 10MG, ONCE A DAY
     Route: 065
     Dates: start: 1993
  14. PREDNISONE. [Suspect]
     Active Substance: PREDNISONE
     Dosage: 20 MG, 1X/DAY
     Route: 065
  15. PURAN [Concomitant]
     Active Substance: LEVOTHYROXINE SODIUM
     Dosage: UNK
  16. ENBREL [Suspect]
     Active Substance: ETANERCEPT
     Dosage: 50 MILLIGRAM, QWK
     Route: 065
     Dates: start: 201207
  17. LOSARTAN. [Concomitant]
     Active Substance: LOSARTAN
     Indication: HYPERTENSION
     Dosage: 50 MILLIGRAM, QD

REACTIONS (24)
  - Condition aggravated [Not Recovered/Not Resolved]
  - Fistula [Unknown]
  - Asthma [Not Recovered/Not Resolved]
  - Chest pain [Not Recovered/Not Resolved]
  - Alopecia [Not Recovered/Not Resolved]
  - Injection site urticaria [Unknown]
  - Injection site pain [Unknown]
  - Urinary tract infection [Recovering/Resolving]
  - Skin sensitisation [Not Recovered/Not Resolved]
  - Pain [Not Recovered/Not Resolved]
  - Diverticulum [Unknown]
  - Condition aggravated [Not Recovered/Not Resolved]
  - Injection site pruritus [Unknown]
  - Dengue fever [Recovering/Resolving]
  - Respiratory tract infection [Unknown]
  - Blood count abnormal [Unknown]
  - Back pain [Not Recovered/Not Resolved]
  - Off label use [Unknown]
  - Influenza [Not Recovered/Not Resolved]
  - Infection [Not Recovered/Not Resolved]
  - Herpes zoster [Recovering/Resolving]
  - Injection site erythema [Unknown]
  - Catarrh [Not Recovered/Not Resolved]
  - Urticaria [Unknown]

NARRATIVE: CASE EVENT DATE: 201205
